FAERS Safety Report 7007493-4 (Version None)
Quarter: 2010Q3

REPORT INFORMATION
  Report Type: 
  Country: None (occurrence: None)
  Receive Date: 20100915
  Receipt Date: 20100906
  Transmission Date: 20110219
  Serious: Yes (Other)
  Sender: FDA-Public Use
  Company Number: WAES 1009USA01168

PATIENT
  Sex: 0

DRUGS (2)
  1. DECADRON [Suspect]
     Dosage: 40 MG/DAILY/PO
     Route: 048
  2. LENALIDOMIDE [Suspect]
     Indication: MULTIPLE MYELOMA
     Dosage: 25 MG/DAILY PO
     Route: 048

REACTIONS (2)
  - HYPERGLYCAEMIA [None]
  - OSTEOMYELITIS [None]
